FAERS Safety Report 6423433-0 (Version None)
Quarter: 2009Q4

REPORT INFORMATION
  Report Type: 
  Country: None (occurrence: None)
  Receive Date: 20091102
  Receipt Date: 20091021
  Transmission Date: 20100525
  Serious: Yes (Hospitalization, Other)
  Sender: FDA-Public Use
  Company Number: B0550084A

PATIENT
  Sex: Male

DRUGS (8)
  1. EPZICOM [Suspect]
     Indication: ACQUIRED IMMUNODEFICIENCY SYNDROME
     Dosage: 1TAB PER DAY
     Route: 048
     Dates: start: 20070618
  2. STOCRIN [Suspect]
     Indication: ACQUIRED IMMUNODEFICIENCY SYNDROME
     Dosage: 600MG UNKNOWN
     Route: 048
     Dates: start: 20070618
  3. VALGANCICLOVIR HCL [Concomitant]
     Indication: CYTOMEGALOVIRUS CHORIORETINITIS
     Dosage: 1800MG PER DAY
     Route: 048
     Dates: start: 20070828, end: 20080926
  4. ZITHROMAX [Concomitant]
     Indication: MYCOBACTERIUM AVIUM COMPLEX INFECTION
     Dosage: 600MG PER DAY
     Route: 048
     Dates: start: 20070522, end: 20090129
  5. MYCOBUTIN [Concomitant]
     Indication: DISSEMINATED TUBERCULOSIS
     Dosage: 450MG PER DAY
     Route: 048
     Dates: start: 20070522, end: 20080801
  6. ISCOTIN [Concomitant]
     Indication: DISSEMINATED TUBERCULOSIS
     Dosage: 300MG PER DAY
     Route: 065
     Dates: start: 20070321, end: 20080801
  7. ESANBUTOL [Concomitant]
     Indication: DISSEMINATED TUBERCULOSIS
     Dosage: 750MG PER DAY
     Route: 048
     Dates: start: 20070321, end: 20080801
  8. BAKTAR [Concomitant]
     Indication: INFECTION PROPHYLAXIS
     Route: 048
     Dates: start: 20070322

REACTIONS (7)
  - CHEST PAIN [None]
  - CHEST X-RAY ABNORMAL [None]
  - CONDITION AGGRAVATED [None]
  - COUGH [None]
  - HAEMOPTYSIS [None]
  - IMMUNE RECONSTITUTION SYNDROME [None]
  - PULMONARY TUBERCULOSIS [None]
